FAERS Safety Report 11933843 (Version 1)
Quarter: 2016Q1

REPORT INFORMATION
  Report Type: Spontaneous
  Country: JP (occurrence: JP)
  Receive Date: 20160121
  Receipt Date: 20160121
  Transmission Date: 20160526
  Serious: Yes (Hospitalization)
  Sender: FDA-Public Use
  Company Number: JP-WATSON-2016-00861

PATIENT
  Age: 65 Year
  Sex: Male

DRUGS (2)
  1. SILODOSIN (UNKNOWN) [Suspect]
     Active Substance: SILODOSIN
     Indication: DYSURIA
     Dosage: UNK
     Route: 048
  2. OXYBUTYNIN [Concomitant]
     Active Substance: OXYBUTYNIN
     Indication: DYSURIA
     Dosage: UNK
     Route: 065

REACTIONS (4)
  - Urinary tract infection [Recovering/Resolving]
  - Renal impairment [Unknown]
  - Nephrostomy [Unknown]
  - Hydronephrosis [Unknown]
